FAERS Safety Report 4586653-6 (Version None)
Quarter: 2005Q1

REPORT INFORMATION
  Report Type: 
  Country: None (occurrence: None)
  Receive Date: 20050218
  Receipt Date: 20040929
  Transmission Date: 20050727
  Serious: No
  Sender: FDA-Public Use
  Company Number: US-BRISTOL-MYERS SQUIBB COMPANY-12718078

PATIENT
  Age: 69 Year
  Sex: Male
  Weight: 109 kg

DRUGS (11)
  1. TAXOL [Suspect]
     Indication: PERITONEAL CARCINOMA
     Dates: start: 20040421, end: 20040421
  2. CARBOPLATIN [Suspect]
     Indication: PERITONEAL CARCINOMA
  3. CYTOXAN [Concomitant]
     Indication: PERITONEAL CARCINOMA
  4. TAGAMET [Concomitant]
     Indication: PREMEDICATION
  5. ANZEMET [Concomitant]
     Indication: PREMEDICATION
  6. BENADRYL [Concomitant]
     Indication: PREMEDICATION
  7. DECADRON [Concomitant]
     Indication: PREMEDICATION
  8. ATENOLOL [Concomitant]
  9. AMIODARONE HCL [Concomitant]
  10. MULTI-VITAMIN [Concomitant]
  11. ASPIRIN [Concomitant]

REACTIONS (1)
  - MUSCULAR WEAKNESS [None]
